FAERS Safety Report 5308372-0 (Version None)
Quarter: 2007Q2

REPORT INFORMATION
  Report Type: 
  Country: None (occurrence: None)
  Receive Date: 20070420
  Receipt Date: 20070413
  Transmission Date: 20071010
  Serious: Yes (Hospitalization)
  Sender: FDA-Public Use
  Company Number: S07-USA-00773-01

PATIENT
  Age: 56 Year
  Sex: Female

DRUGS (13)
  1. LEXAPRO [Suspect]
     Indication: BACK PAIN
     Dates: start: 20060501, end: 20060807
  2. LEXAPRO [Suspect]
     Indication: DEPRESSION
     Dates: start: 20060501, end: 20060807
  3. LEXAPRO [Suspect]
     Indication: BACK PAIN
     Dates: start: 20060808, end: 20060101
  4. LEXAPRO [Suspect]
     Indication: DEPRESSION
     Dates: start: 20060808, end: 20060101
  5. LEXAPRO [Suspect]
     Indication: BACK PAIN
     Dosage: 10 MG QD PO
     Route: 048
     Dates: end: 20060501
  6. LEXAPRO [Suspect]
     Indication: DEPRESSION
     Dosage: 10 MG QD PO
     Route: 048
     Dates: end: 20060501
  7. GLUCOVANCE (GLYBURIDE/METFORMIN) [Concomitant]
  8. BLOOD PRESSURE MEDICATION [Concomitant]
  9. ULTRAM [Concomitant]
  10. ADIPEX [Concomitant]
  11. LEVOTHYROXINE SODIUM [Concomitant]
  12. MUSCLE RELAXER [Concomitant]
  13. CHOLESTEROL MEDICATION [Concomitant]

REACTIONS (4)
  - CHOREA [None]
  - FALL [None]
  - TARDIVE DYSKINESIA [None]
  - TREMOR [None]
